FAERS Safety Report 21733967 (Version 2)
Quarter: 2024Q4

REPORT INFORMATION
  Report Type: Spontaneous
  Country: US (occurrence: US)
  Receive Date: 20221215
  Receipt Date: 20241016
  Transmission Date: 20250115
  Serious: No
  Sender: RANBAXY
  Company Number: US-SUN PHARMACEUTICAL INDUSTRIES LTD-2022R1-356646

PATIENT
  Sex: Female

DRUGS (1)
  1. WINLEVI [Suspect]
     Active Substance: CLASCOTERONE
     Indication: Product used for unknown indication
     Route: 061

REACTIONS (5)
  - Drug ineffective [Unknown]
  - Product physical consistency issue [Unknown]
  - Therapy cessation [Unknown]
  - Application site exfoliation [Unknown]
  - Product dose omission issue [Unknown]
